FAERS Safety Report 19535317 (Version 1)
Quarter: 2021Q3

REPORT INFORMATION
  Report Type: Spontaneous
  Country: US (occurrence: US)
  Receive Date: 20210713
  Receipt Date: 20210713
  Transmission Date: 20211014
  Serious: Yes (Death)
  Sender: FDA-Public Use
  Company Number: None

PATIENT
  Age: 65 Year
  Sex: Male
  Weight: 73.6 kg

DRUGS (23)
  1. MONTELUKAST [Concomitant]
     Active Substance: MONTELUKAST SODIUM
     Dates: start: 20180923
  2. OXYCODONE?ACETAMINOPHEN [Concomitant]
     Active Substance: ACETAMINOPHEN\OXYCODONE HYDROCHLORIDE
     Dates: start: 20201020
  3. PREGABALIN. [Concomitant]
     Active Substance: PREGABALIN
     Dates: start: 20210129
  4. METFORMIN [Suspect]
     Active Substance: METFORMIN HYDROCHLORIDE
     Indication: PLASMA CELL MYELOMA
     Route: 048
     Dates: start: 20210429, end: 20210512
  5. CARBOXYMETHYLCELLULOSE GLYCERIN [Concomitant]
     Dates: start: 20150615
  6. ONDANSETRON [Concomitant]
     Active Substance: ONDANSETRON
     Dates: start: 20180615
  7. APIXABAN [Concomitant]
     Active Substance: APIXABAN
     Dates: start: 20210428
  8. FLUTICASONE PROPIONATE. [Concomitant]
     Active Substance: FLUTICASONE PROPIONATE
     Dates: start: 20181123
  9. LORATADINE. [Concomitant]
     Active Substance: LORATADINE
     Dates: start: 20150615
  10. PAROXETINE. [Concomitant]
     Active Substance: PAROXETINE
     Dates: start: 20180615
  11. NELFINAVIR [Suspect]
     Active Substance: NELFINAVIR
     Indication: PLASMA CELL MYELOMA
     Route: 048
     Dates: start: 20210429, end: 20210512
  12. ALBUTEROL. [Concomitant]
     Active Substance: ALBUTEROL
     Dates: start: 20210501
  13. ACYCLOVIR. [Concomitant]
     Active Substance: ACYCLOVIR
     Dates: start: 20190401
  14. BUPROPION. [Concomitant]
     Active Substance: BUPROPION
     Dates: start: 20150615
  15. CARBOXYMETHYLCELLULOSE SODIUM. [Concomitant]
     Active Substance: CARBOXYMETHYLCELLULOSE SODIUM
     Dates: start: 20010615
  16. FAMOTIDINE. [Concomitant]
     Active Substance: FAMOTIDINE
     Dates: start: 20050615
  17. LOTEPREDNOL [Concomitant]
     Active Substance: LOTEPREDNOL
     Dates: start: 20210405
  18. BUDESONIDE?FORMOTEROL [Concomitant]
     Active Substance: BUDESONIDE\FORMOTEROL
     Dates: start: 20180923
  19. IPRATROPIUM?ALBUTEROL [Concomitant]
     Active Substance: ALBUTEROL\IPRATROPIUM
     Dates: start: 20190513
  20. RISPERIDONE. [Concomitant]
     Active Substance: RISPERIDONE
     Dates: start: 20150615
  21. ACETAMINOPHEN. [Concomitant]
     Active Substance: ACETAMINOPHEN
     Dates: start: 20201024
  22. DEXTRAN 70 HYPROMELLOSE [Concomitant]
     Dates: start: 20150615
  23. TIOTROPIUM [Concomitant]
     Active Substance: TIOTROPIUM
     Dates: start: 20200206

REACTIONS (2)
  - Disease progression [None]
  - Malignant neoplasm progression [None]

NARRATIVE: CASE EVENT DATE: 20210702
